FAERS Safety Report 13091286 (Version 1)
Quarter: 2017Q1

REPORT INFORMATION
  Report Type: Spontaneous
  Country: US (occurrence: US)
  Receive Date: 20170106
  Receipt Date: 20170106
  Transmission Date: 20170428
  Serious: No
  Sender: FDA-Public Use
  Company Number: US-JNJFOC-20161109892

PATIENT

DRUGS (2)
  1. VISINE (UNSPECIFIED) [Suspect]
     Active Substance: TETRAHYDROZOLINE HYDROCHLORIDE
     Route: 061
  2. VISINE (UNSPECIFIED) [Suspect]
     Active Substance: TETRAHYDROZOLINE HYDROCHLORIDE
     Indication: ACNE
     Route: 061

REACTIONS (3)
  - Incorrect route of drug administration [Unknown]
  - Product use issue [Unknown]
  - Therapeutic response unexpected [Unknown]
